FAERS Safety Report 25052165 (Version 1)
Quarter: 2025Q1

REPORT INFORMATION
  Report Type: Spontaneous
  Country: US (occurrence: US)
  Receive Date: 20250307
  Receipt Date: 20250307
  Transmission Date: 20250409
  Serious: No
  Sender: PFIZER
  Company Number: US-PFIZER INC-202500051250

PATIENT
  Age: 79 Year
  Sex: Female

DRUGS (9)
  1. IBRANCE [Suspect]
     Active Substance: PALBOCICLIB
     Route: 048
     Dates: start: 20250228
  2. LEVOTHYROXINE [Concomitant]
     Active Substance: LEVOTHYROXINE
  3. ZOLPIDEM [Concomitant]
     Active Substance: ZOLPIDEM TARTRATE
  4. VITAMIN D NOS [Concomitant]
     Active Substance: CHOLECALCIFEROL\ERGOCALCIFEROL
  5. HYDROCHLOROTHIAZIDE [Concomitant]
     Active Substance: HYDROCHLOROTHIAZIDE
  6. MELATONIN [Concomitant]
     Active Substance: MELATONIN
  7. MAGNESIUM [Concomitant]
     Active Substance: MAGNESIUM
  8. LISINOPRIL [Concomitant]
     Active Substance: LISINOPRIL
  9. LOSARTAN [Concomitant]
     Active Substance: LOSARTAN

REACTIONS (4)
  - Dyspepsia [Recovered/Resolved]
  - Vomiting [Recovered/Resolved]
  - Diarrhoea [Recovered/Resolved]
  - Dyspnoea [Recovered/Resolved]
